FAERS Safety Report 5234560-8 (Version None)
Quarter: 2007Q1

REPORT INFORMATION
  Report Type: 
  Country: None (occurrence: None)
  Receive Date: 20070209
  Receipt Date: 20070205
  Transmission Date: 20070707
  Serious: Yes (Death, Hospitalization)
  Sender: FDA-Public Use
  Company Number: US-SANOFI-SYNTHELABO-F03200700031

PATIENT
  Sex: Male
  Weight: 75 kg

DRUGS (14)
  1. LASIX [Concomitant]
     Route: 048
  2. INDERAL [Concomitant]
     Route: 048
  3. FOLIC ACID [Concomitant]
     Route: 048
  4. NEXIUM [Concomitant]
     Route: 048
  5. VITAMIN K [Concomitant]
     Route: 048
  6. B1 [Concomitant]
     Route: 048
  7. CAPECITABINE [Concomitant]
     Route: 048
  8. CETUXIMAB [Suspect]
     Route: 042
     Dates: start: 20070119, end: 20070119
  9. OXALIPLATIN [Suspect]
     Indication: HEPATIC NEOPLASM MALIGNANT
     Route: 042
     Dates: start: 20070112, end: 20070112
  10. ATIVAN [Concomitant]
     Route: 065
  11. COMPAZINE [Concomitant]
     Route: 048
  12. PHENERGAN [Concomitant]
     Route: 065
  13. SPIRONOLACTONE [Concomitant]
     Route: 048
  14. OXYCODONE HCL [Concomitant]
     Route: 048

REACTIONS (7)
  - ACIDOSIS [None]
  - HEPATIC ENCEPHALOPATHY [None]
  - HYPONATRAEMIA [None]
  - LIVER DISORDER [None]
  - MENTAL STATUS CHANGES [None]
  - RESPIRATORY DISTRESS [None]
  - SEPTIC SHOCK [None]
